FAERS Safety Report 8986089 (Version 1)
Quarter: 2012Q4

REPORT INFORMATION
  Report Type: Spontaneous
  Country: US (occurrence: None)
  Receive Date: 20120928
  Receipt Date: 20120928
  Transmission Date: 20130627
  Serious: Yes (Hospitalization)
  Sender: FDA-Public Use
  Company Number: 20120597

PATIENT
  Age: 40 Year
  Sex: Female

DRUGS (3)
  1. ZIDOVUDINE [Suspect]
  2. RALTEGRAVIR [Suspect]
  3. LAMIVUDINE [Suspect]

REACTIONS (10)
  - Lactic acidosis [None]
  - Diarrhoea [None]
  - Vomiting [None]
  - Bronchitis [None]
  - Heart rate increased [None]
  - Body temperature decreased [None]
  - Hypotension [None]
  - Anuria [None]
  - Renal failure acute [None]
  - Continuous haemodiafiltration [None]
